FAERS Safety Report 5078874-3 (Version None)
Quarter: 2006Q3

REPORT INFORMATION
  Report Type: 
  Country: None (occurrence: None)
  Receive Date: 20060814
  Receipt Date: 20060803
  Transmission Date: 20061208
  Serious: Yes (Hospitalization)
  Sender: FDA-Public Use
  Company Number: PHBS2006MX11690

PATIENT
  Age: 75 Year
  Sex: Female

DRUGS (3)
  1. ZELMAC [Suspect]
     Indication: DIARRHOEA
     Dosage: 6 MG, QID
     Route: 048
     Dates: start: 20060802, end: 20060803
  2. DRAMAMINE [Concomitant]
     Indication: DIARRHOEA
  3. ANTIBIOTICS [Concomitant]

REACTIONS (1)
  - DIARRHOEA [None]
